FAERS Safety Report 8936390 (Version 1)
Quarter: 2012Q4

REPORT INFORMATION
  Report Type: 
  Country: US (occurrence: US)
  Receive Date: 20121130
  Receipt Date: 20121130
  Transmission Date: 20130627
  Serious: Yes (Hospitalization, Other)
  Sender: FDA-Public Use
  Company Number: US-PFIZER INC-2012296323

PATIENT
  Sex: Male

DRUGS (13)
  1. ZOLOFT [Suspect]
     Indication: DEPRESSION
     Dosage: 12.5 mg, daily, UNK
     Route: 064
     Dates: start: 20090102
  2. ZOLOFT [Suspect]
     Indication: MOOD DISORDER NOS
     Dosage: 50 mg, daily, UNK
     Route: 064
     Dates: start: 20090103
  3. TYLENOL [Concomitant]
     Indication: PAIN
     Dosage: 650 mg, UNK
     Route: 064
     Dates: start: 20090101
  4. DIFLUCAN [Concomitant]
     Dosage: 150 mg, UNK
     Route: 064
     Dates: start: 20090101
  5. AMBIEN [Concomitant]
     Indication: SLEEP DISORDER
     Dosage: 5 mg, UNK
     Route: 064
     Dates: start: 20090102
  6. SURFAK [Concomitant]
     Dosage: daily, UNK
     Route: 064
     Dates: start: 20090102
  7. ZANTAC [Concomitant]
     Dosage: 150 mg, UNK
     Route: 064
     Dates: start: 20090102
  8. REGLAN [Concomitant]
     Dosage: 10 mg, UNK
     Route: 064
     Dates: start: 20090102
  9. ASCORBIC ACID [Concomitant]
     Dosage: 500 mg, UNK
     Route: 064
     Dates: start: 20090212
  10. SPRINTEC [Concomitant]
     Dosage: 0.25-0.035mg, UNK
     Route: 064
     Dates: start: 20090216
  11. IBUPROFEN [Concomitant]
     Dosage: 800 mg, UNK
     Route: 064
     Dates: start: 20090216
  12. MICONAZOLE NITRATE [Concomitant]
     Dosage: 400 mg, UNK
     Route: 064
     Dates: start: 20081212
  13. PRENATAL VITAMINS [Concomitant]
     Dosage: daily during pregnancy, UNK
     Route: 064

REACTIONS (3)
  - Maternal exposure timing unspecified [Unknown]
  - Infection [Unknown]
  - Premature baby [Unknown]
